FAERS Safety Report 9305181 (Version 1)
Quarter: 2013Q2

REPORT INFORMATION
  Report Type: Spontaneous
  Country: AU (occurrence: AU)
  Receive Date: 20130523
  Receipt Date: 20130523
  Transmission Date: 20140414
  Serious: Yes (Other)
  Sender: FDA-Public Use
  Company Number: AU-JNJFOC-20130509304

PATIENT
  Age: 38 Year
  Sex: Male

DRUGS (10)
  1. INFLIXIMAB, RECOMBINANT [Suspect]
     Indication: COLITIS ULCERATIVE
     Route: 042
     Dates: end: 2012
  2. INFLIXIMAB, RECOMBINANT [Suspect]
     Indication: COLITIS ULCERATIVE
     Route: 042
     Dates: start: 201207, end: 201209
  3. INFLIXIMAB, RECOMBINANT [Suspect]
     Indication: COLITIS ULCERATIVE
     Route: 042
     Dates: start: 2012, end: 201212
  4. INFLIXIMAB, RECOMBINANT [Suspect]
     Indication: ANKYLOSING SPONDYLITIS
     Route: 042
     Dates: end: 2012
  5. INFLIXIMAB, RECOMBINANT [Suspect]
     Indication: ANKYLOSING SPONDYLITIS
     Route: 042
     Dates: start: 201207, end: 201209
  6. INFLIXIMAB, RECOMBINANT [Suspect]
     Indication: ANKYLOSING SPONDYLITIS
     Route: 042
     Dates: start: 2012, end: 201212
  7. HEPARIN [Suspect]
     Indication: PROPHYLAXIS
     Route: 065
     Dates: start: 201205
  8. METHOTREXATE [Concomitant]
     Route: 065
  9. SULFASALAZINE [Concomitant]
     Route: 065
  10. FOLATE [Concomitant]
     Route: 065

REACTIONS (6)
  - Hip arthroplasty [Unknown]
  - Thrombocytopenia [Recovering/Resolving]
  - Contusion [Unknown]
  - Neutropenia [Recovering/Resolving]
  - Colitis ulcerative [Recovering/Resolving]
  - Ankylosing spondylitis [Recovering/Resolving]
